FAERS Safety Report 10350982 (Version 1)
Quarter: 2014Q3

REPORT INFORMATION
  Report Type: Spontaneous
  Country: US (occurrence: US)
  Receive Date: 20140730
  Receipt Date: 20140730
  Transmission Date: 20150326
  Serious: Yes (Other)
  Sender: FDA-Public Use
  Company Number: US-ACTAVIS-2014-16213

PATIENT

DRUGS (2)
  1. HYDROCODONE BITARTRATE/ACETAMINOPHEN 5/500 (WATSON LABORATORIES) [Suspect]
     Active Substance: ACETAMINOPHEN\HYDROCODONE BITARTRATE
     Indication: PAIN
     Dosage: UNK, UNKNOWN
     Route: 065
  2. HYDROCODONE BITARTRATE/ACETAMINOPHEN 5/325 MG (WATSON LABORATORIES) [Suspect]
     Active Substance: ACETAMINOPHEN\HYDROCODONE BITARTRATE
     Indication: PAIN
     Dosage: UNK, UNKNOWN
     Route: 065

REACTIONS (3)
  - Somnolence [Unknown]
  - Drug ineffective [Unknown]
  - Memory impairment [Unknown]
